FAERS Safety Report 5304939-4 (Version None)
Quarter: 2007Q2

REPORT INFORMATION
  Report Type: 
  Country: None (occurrence: None)
  Receive Date: 20070423
  Receipt Date: 20070413
  Transmission Date: 20071010
  Serious: Yes (Other)
  Sender: FDA-Public Use
  Company Number: GB-SHR-GB-2007-013017

PATIENT
  Age: 51 Year
  Sex: Male

DRUGS (5)
  1. FLUDARABINE [Suspect]
     Indication: STEM CELL TRANSPLANT
  2. BUSULPHAN [Suspect]
     Indication: STEM CELL TRANSPLANT
  3. PENICILLIN V [Concomitant]
     Dosage: 250 MG, 2X/DAY
     Route: 048
  4. LANSOPRAZOLE [Concomitant]
     Dosage: 30 MG, 1X/DAY
     Route: 048
  5. CAMPATH [Suspect]
     Indication: STEM CELL TRANSPLANT

REACTIONS (1)
  - SARCOIDOSIS [None]
